FAERS Safety Report 6930233-1 (Version None)
Quarter: 2010Q3

REPORT INFORMATION
  Report Type: 
  Country: None (occurrence: None)
  Receive Date: 20100818
  Receipt Date: 20100810
  Transmission Date: 20110219
  Serious: Yes (Hospitalization)
  Sender: FDA-Public Use
  Company Number: US-SANOFI-AVENTIS-2010SA033720

PATIENT
  Age: 63 Year
  Sex: Female
  Weight: 90.9 kg

DRUGS (20)
  1. MULTAQ [Suspect]
     Indication: ATRIAL FIBRILLATION
     Route: 048
     Dates: start: 20100429, end: 20100522
  2. BUMETANIDE [Concomitant]
  3. COUMADIN [Concomitant]
     Dosage: 1-2MG QD
  4. COZAAR [Concomitant]
  5. DIGOXIN [Concomitant]
  6. POTASSIUM [Concomitant]
  7. SPIRONOLACTONE [Concomitant]
  8. TRICOR [Concomitant]
  9. ZETIA [Concomitant]
  10. NITROGLYCERIN [Concomitant]
  11. OMEPRAZOLE [Concomitant]
  12. NEURONTIN [Concomitant]
  13. LEXAPRO [Concomitant]
  14. ALPRAZOLAM [Concomitant]
     Dosage: FREQUENCY: BID-TID
  15. HYDROCODONE BITARTRATE [Concomitant]
     Dosage: DOSE: 5/500
  16. HUMALOG [Concomitant]
     Dosage: 14 U AT BREAKFAST, 20U AT LUNCH, 24 U AT SUPPER PLUS SLIDING SCALE PRN
  17. MULTI-VITAMINS [Concomitant]
     Route: 065
  18. ASCORBIC ACID [Concomitant]
  19. CALCIUM [Concomitant]
  20. LANTUS [Concomitant]
     Dosage: DOSE:53 UNIT(S)
     Route: 058

REACTIONS (7)
  - ANAEMIA [None]
  - ASTHENIA [None]
  - DYSPNOEA [None]
  - GAIT DISTURBANCE [None]
  - MYALGIA [None]
  - PALPITATIONS [None]
  - PHOTOPHOBIA [None]
